FAERS Safety Report 9528573 (Version 1)
Quarter: 2013Q3

REPORT INFORMATION
  Report Type: Spontaneous
  Country: DE (occurrence: DE)
  Receive Date: 20130917
  Receipt Date: 20130917
  Transmission Date: 20140515
  Serious: Yes (Hospitalization, Other)
  Sender: FDA-Public Use
  Company Number: DE-TEVA-431019GER

PATIENT
  Age: 1 Day
  Sex: Male

DRUGS (5)
  1. LAMOTRIGIN [Suspect]
     Route: 064
  2. TREVILOR [Suspect]
     Route: 064
  3. PROMETHAZIN NEURAXPHARM [Suspect]
     Route: 064
  4. L-THYROXIN 50 [Concomitant]
     Route: 064
  5. FOLIO FORTE [Concomitant]
     Route: 064

REACTIONS (3)
  - Neonatal respiratory distress syndrome [Recovered/Resolved]
  - Drug withdrawal syndrome neonatal [Recovered/Resolved]
  - Bradycardia neonatal [Recovered/Resolved]
